FAERS Safety Report 8160190-4 (Version None)
Quarter: 2012Q1

REPORT INFORMATION
  Report Type: 
  Country: None (occurrence: None)
  Receive Date: 20120103
  Receipt Date: 20111119
  Transmission Date: 20120608
  Serious: No
  Sender: FDA-Public Use
  Company Number: AE-2011-003805

PATIENT
  Age: 55 Year
  Sex: Female

DRUGS (6)
  1. PEGASYS (PEGINTERFERON ALFA) [Concomitant]
  2. RIBASPHERE [Concomitant]
  3. CARDIZEM [Concomitant]
  4. HYDROCHLOROTHIAZIDE [Concomitant]
  5. INCIVEK [Suspect]
     Dosage: 1500 MG (750 MG, 2 IN 1 D), ORAL
     Route: 048
     Dates: start: 20111106
  6. COREG [Concomitant]

REACTIONS (7)
  - CHEST PAIN [None]
  - EYE SWELLING [None]
  - DYSPNOEA [None]
  - OEDEMA PERIPHERAL [None]
  - LOCAL SWELLING [None]
  - DYSPHAGIA [None]
  - SWELLING FACE [None]
